FAERS Safety Report 4781193-3 (Version None)
Quarter: 2005Q3

REPORT INFORMATION
  Report Type: 
  Country: None (occurrence: None)
  Receive Date: 20050928
  Receipt Date: 20050519
  Transmission Date: 20060218
  Serious: Yes (Hospitalization)
  Sender: FDA-Public Use
  Company Number: 2005PK00873

PATIENT
  Age: 15035 Day
  Sex: Female

DRUGS (7)
  1. ZD1839 [Suspect]
     Indication: NON-SMALL CELL LUNG CANCER
     Route: 048
     Dates: start: 20040620
  2. EFFORTIL PLUS [Concomitant]
  3. MST [Concomitant]
  4. EFFEXOR [Concomitant]
  5. PANDOL [Concomitant]
  6. VOLTAREN [Concomitant]
  7. TRANXILIUM [Concomitant]

REACTIONS (1)
  - METASTASES TO MENINGES [None]
